FAERS Safety Report 5579855-3 (Version None)
Quarter: 2008Q1

REPORT INFORMATION
  Report Type: 
  Country: None (occurrence: None)
  Receive Date: 20080102
  Receipt Date: 20071226
  Transmission Date: 20080703
  Serious: Yes (Hospitalization)
  Sender: FDA-Public Use
  Company Number: JP-PFIZER INC-2007105979

PATIENT
  Sex: Male

DRUGS (5)
  1. NORVASC [Suspect]
     Indication: HYPERTENSION
     Dosage: DAILY DOSE:2.5MG
     Route: 048
     Dates: start: 20071119, end: 20071119
  2. SODIUM CHLORIDE [Concomitant]
     Route: 042
     Dates: start: 20071119, end: 20071119
  3. MEYLON [Concomitant]
     Indication: DIZZINESS
     Route: 042
     Dates: start: 20071119, end: 20071119
  4. NEOLAMIN [Concomitant]
     Route: 042
     Dates: start: 20071119, end: 20071119
  5. APOPLON [Concomitant]
     Route: 030
     Dates: start: 20071119, end: 20071119

REACTIONS (1)
  - CEREBRAL INFARCTION [None]
